FAERS Safety Report 13278644 (Version 1)
Quarter: 2017Q1

REPORT INFORMATION
  Report Type: Spontaneous
  Country: US (occurrence: US)
  Receive Date: 20170228
  Receipt Date: 20170228
  Transmission Date: 20170428
  Serious: Yes (Other)
  Sender: FDA-Public Use
  Company Number: US-ABBVIE-16P-163-1621006-00

PATIENT
  Sex: Male

DRUGS (9)
  1. AXIRON [Suspect]
     Active Substance: TESTOSTERONE
     Indication: ANDROGEN REPLACEMENT THERAPY
     Route: 065
     Dates: start: 2008, end: 201109
  2. TESTOPEL [Suspect]
     Active Substance: TESTOSTERONE
     Indication: ANDROGEN REPLACEMENT THERAPY
     Route: 065
     Dates: start: 2008, end: 201109
  3. FORTESTA [Suspect]
     Active Substance: TESTOSTERONE
     Indication: ANDROGEN REPLACEMENT THERAPY
     Route: 065
     Dates: start: 2008, end: 201109
  4. ANDROGEL [Suspect]
     Active Substance: TESTOSTERONE
     Indication: ANDROGEN REPLACEMENT THERAPY
     Route: 061
     Dates: start: 2008, end: 201109
  5. DELATESTRYL [Suspect]
     Active Substance: TESTOSTERONE ENANTHATE
     Indication: ANDROGEN REPLACEMENT THERAPY
     Route: 065
     Dates: start: 2008, end: 201109
  6. DEPO-TESTOSTERONE [Suspect]
     Active Substance: TESTOSTERONE CYPIONATE
     Indication: ANDROGEN REPLACEMENT THERAPY
     Route: 065
     Dates: start: 2008, end: 201109
  7. STRIANT [Suspect]
     Active Substance: TESTOSTERONE
     Indication: ANDROGEN REPLACEMENT THERAPY
     Route: 065
     Dates: start: 2008, end: 201109
  8. TESTIM [Suspect]
     Active Substance: TESTOSTERONE
     Indication: ANDROGEN REPLACEMENT THERAPY
     Route: 065
     Dates: start: 2008, end: 201109
  9. ANDRODERM [Suspect]
     Active Substance: TESTOSTERONE
     Indication: ANDROGEN REPLACEMENT THERAPY
     Route: 065
     Dates: start: 2008, end: 201109

REACTIONS (2)
  - Myocardial infarction [Unknown]
  - Myocardial infarction [Unknown]

NARRATIVE: CASE EVENT DATE: 20080613
